FAERS Safety Report 11061151 (Version 1)
Quarter: 2015Q2

REPORT INFORMATION
  Report Type: Spontaneous
  Country: US (occurrence: US)
  Receive Date: 20150424
  Receipt Date: 20150424
  Transmission Date: 20150821
  Serious: No
  Sender: FDA-Public Use
  Company Number: US-ASTRAZENECA-2014SE82485

PATIENT
  Sex: Female

DRUGS (2)
  1. METFORMIN [Concomitant]
     Active Substance: METFORMIN HYDROCHLORIDE
  2. BYDUREON [Suspect]
     Active Substance: EXENATIDE
     Indication: TYPE 2 DIABETES MELLITUS
     Route: 058

REACTIONS (8)
  - Injection site haemorrhage [Unknown]
  - Wrong technique in drug usage process [Unknown]
  - Underdose [Unknown]
  - Intentional product misuse [Unknown]
  - Device misuse [Unknown]
  - Nervousness [Unknown]
  - Crying [Unknown]
  - Visual impairment [Unknown]
